FAERS Safety Report 16042552 (Version 1)
Quarter: 2019Q1

REPORT INFORMATION
  Report Type: Spontaneous
  Country: US (occurrence: US)
  Receive Date: 20190306
  Receipt Date: 20190306
  Transmission Date: 20190418
  Serious: No
  Sender: FDA-Public Use
  Company Number: US-BIOGEN-2019BI00701453

PATIENT
  Sex: Male

DRUGS (2)
  1. TECFIDERA [Suspect]
     Active Substance: DIMETHYL FUMARATE
     Dosage: X 23 DAYS AFTER THE 120 MG DOSES
     Route: 050
     Dates: start: 20190223
  2. TECFIDERA [Suspect]
     Active Substance: DIMETHYL FUMARATE
     Indication: MULTIPLE SCLEROSIS
     Dosage: X 7 DAYS
     Route: 050
     Dates: start: 20190215, end: 20190222

REACTIONS (5)
  - Limb discomfort [Unknown]
  - Blood pressure increased [Unknown]
  - Chest discomfort [Unknown]
  - Flushing [Recovered/Resolved]
  - Abdominal discomfort [Unknown]
